FAERS Safety Report 18039482 (Version 2)
Quarter: 2020Q3

REPORT INFORMATION
  Report Type: Spontaneous
  Country: CA (occurrence: CA)
  Receive Date: 20200718
  Receipt Date: 20200729
  Transmission Date: 20201103
  Serious: Yes (Other)
  Sender: FDA-Public Use
  Company Number: CA-ACCORD-190266

PATIENT
  Age: 68 Year
  Sex: Female

DRUGS (4)
  1. FLUOROURACIL/FLUOROURACIL SODIUM [Concomitant]
     Active Substance: FLUOROURACIL SODIUM
     Indication: PANCREATIC CARCINOMA
  2. OXALIPLATIN. [Suspect]
     Active Substance: OXALIPLATIN
     Indication: PANCREATIC CARCINOMA
  3. IRINOTECAN [Suspect]
     Active Substance: IRINOTECAN
     Indication: PANCREATIC CARCINOMA
     Dosage: 180 MG/M2
     Route: 042
  4. FOLINIC ACID [Concomitant]
     Active Substance: LEUCOVORIN
     Indication: PANCREATIC CARCINOMA

REACTIONS (7)
  - Dysarthria [Recovered/Resolved]
  - Visual impairment [Recovered/Resolved]
  - Speech disorder [Unknown]
  - Off label use [Unknown]
  - Dysphagia [Unknown]
  - Neurotoxicity [Unknown]
  - Neuropathy peripheral [Not Recovered/Not Resolved]
